FAERS Safety Report 19889377 (Version 2)
Quarter: 2021Q4

REPORT INFORMATION
  Report Type: Spontaneous
  Country: US (occurrence: US)
  Receive Date: 20210927
  Receipt Date: 20211228
  Transmission Date: 20220303
  Serious: No
  Sender: FDA-Public Use
  Company Number: US-ASTELLAS-2021US034382

PATIENT
  Age: 76 Year
  Sex: Male

DRUGS (2)
  1. PADCEV [Suspect]
     Active Substance: ENFORTUMAB VEDOTIN-EJFV
     Indication: Transitional cell carcinoma
     Dosage: 0.6 MG/KG, EVERY 3 WEEKS
     Route: 065
     Dates: start: 20200520, end: 20210819
  2. PADCEV [Suspect]
     Active Substance: ENFORTUMAB VEDOTIN-EJFV
     Dosage: 0.6 MG/KG, EVERY 3 WEEKS
     Route: 065
     Dates: start: 20210923

REACTIONS (4)
  - Lacrimation increased [Recovering/Resolving]
  - Visual impairment [Not Recovered/Not Resolved]
  - Photophobia [Recovering/Resolving]
  - Dry eye [Recovering/Resolving]

NARRATIVE: CASE EVENT DATE: 20210729
